FAERS Safety Report 20086883 (Version 1)
Quarter: 2021Q4

REPORT INFORMATION
  Report Type: Spontaneous
  Country: JP (occurrence: JP)
  Receive Date: 20211118
  Receipt Date: 20211118
  Transmission Date: 20220303
  Serious: Yes (Other)
  Sender: FDA-Public Use
  Company Number: JP-BAYER-2021A249384

PATIENT
  Age: 11 Year
  Sex: Female

DRUGS (1)
  1. STIVARGA [Suspect]
     Active Substance: REGORAFENIB
     Indication: Osteosarcoma metastatic
     Dosage: 40MG-80MG
     Dates: start: 20191030, end: 20200309

REACTIONS (14)
  - Pericardial effusion [Not Recovered/Not Resolved]
  - Leukopenia [None]
  - Thrombocytopenia [None]
  - Hypothyroidism [None]
  - Right ventricular dysfunction [Not Recovered/Not Resolved]
  - Anaemia [None]
  - Lymphopenia [None]
  - Diarrhoea [None]
  - Palmar-plantar erythrodysaesthesia syndrome [None]
  - Nausea [None]
  - Hypertriglyceridaemia [None]
  - Aspartate aminotransferase increased [None]
  - Alanine aminotransferase increased [None]
  - Off label use [None]

NARRATIVE: CASE EVENT DATE: 20200217
